FAERS Safety Report 7841187 (Version 2)
Quarter: 2021Q1

REPORT INFORMATION
  Report Type: Spontaneous
  Country: US (occurrence: US)
  Receive Date: 20110304
  Receipt Date: 20210224
  Transmission Date: 20210420
  Serious: Yes (Hospitalization, Other)
  Sender: FDA-Public Use
  Company Number: US-PFIZER INC-2009209397

PATIENT
  Age: 13 Year
  Sex: Male

DRUGS (3)
  1. DILANTIN [Suspect]
     Active Substance: PHENYTOIN
     Indication: SEIZURE
     Dosage: 100 MG, 1X/DAY(EVERY NIGHT)
     Route: 048
     Dates: start: 20070902
  2. AMOXICILLIN. [Suspect]
     Active Substance: AMOXICILLIN
     Indication: OROPHARYNGEAL PAIN
     Dosage: 500 MG, UNK
     Route: 048
     Dates: start: 20070917
  3. PHENYTOIN. [Suspect]
     Active Substance: PHENYTOIN
     Dosage: 1 G, UNK
     Route: 041
     Dates: start: 20070901

REACTIONS (1)
  - Stevens-Johnson syndrome [Recovering/Resolving]

NARRATIVE: CASE EVENT DATE: 20070919
